FAERS Safety Report 23956737 (Version 1)
Quarter: 2024Q2

REPORT INFORMATION
  Report Type: Spontaneous
  Country: ES (occurrence: ES)
  Receive Date: 20240610
  Receipt Date: 20240610
  Transmission Date: 20240715
  Serious: Yes (Other)
  Sender: FDA-Public Use
  Company Number: ES-SANDOZ-SDZ2024ES055975

PATIENT
  Sex: Female

DRUGS (3)
  1. HYRIMOZ [Suspect]
     Active Substance: ADALIMUMAB-ADAZ
     Indication: Colitis microscopic
     Dosage: 40 MG/14 DAYS
     Route: 065
     Dates: start: 2020
  2. HYRIMOZ [Suspect]
     Active Substance: ADALIMUMAB-ADAZ
     Dosage: 40 MG/14 DAYS
     Route: 065
     Dates: start: 2023
  3. HYRIMOZ [Suspect]
     Active Substance: ADALIMUMAB-ADAZ
     Dosage: 40 MG/21 DAYS
     Route: 065
     Dates: start: 202107

REACTIONS (3)
  - Colitis [Recovering/Resolving]
  - Bruxism [Unknown]
  - Migraine [Unknown]

NARRATIVE: CASE EVENT DATE: 20220101
